FAERS Safety Report 8801802 (Version 2)
Quarter: 2012Q4

REPORT INFORMATION
  Report Type: 
  Country: US (occurrence: US)
  Receive Date: 20120921
  Receipt Date: 20121024
  Transmission Date: 20130627
  Serious: No
  Sender: FDA-Public Use
  Company Number: US-ELI_LILLY_AND_COMPANY-US201209003566

PATIENT
  Sex: Female
  Weight: 75.28 kg

DRUGS (9)
  1. CYMBALTA [Suspect]
     Indication: DEPRESSION
     Dosage: 120 mg, qd
     Route: 048
     Dates: start: 20091005, end: 20120901
  2. ADVAIR DISKUS [Concomitant]
  3. ALBUTEROL [Concomitant]
  4. COGENTIN [Concomitant]
  5. GEODON [Concomitant]
  6. NORCO [Concomitant]
  7. OXYCONTIN [Concomitant]
  8. KLONOPIN [Concomitant]
  9. OMEPRAZOLE [Concomitant]

REACTIONS (3)
  - Hepatic steatosis [Unknown]
  - Hypertension [Unknown]
  - Helicobacter test positive [Unknown]
